FAERS Safety Report 24210595 (Version 1)
Quarter: 2024Q3

REPORT INFORMATION
  Report Type: Spontaneous
  Country: US (occurrence: None)
  Receive Date: 20240813
  Receipt Date: 20240813
  Transmission Date: 20241017
  Serious: Yes (Hospitalization)
  Sender: Public
  Company Number: None

PATIENT
  Age: 85 Year
  Sex: Female
  Weight: 57.15 kg

DRUGS (13)
  1. RECLAST [Suspect]
     Active Substance: ZOLEDRONIC ACID
     Indication: Bone disorder
     Dosage: LAST S 1 YEAR INFUSION
     Dates: start: 20240510
  2. ACETAMINOPHEN\HYDROCODONE [Concomitant]
     Active Substance: ACETAMINOPHEN\HYDROCODONE
  3. ACETAMINOPHEN\HYDROCODONE [Concomitant]
     Active Substance: ACETAMINOPHEN\HYDROCODONE
  4. CALCIUM 1200 [Concomitant]
  5. CITALOPRAM HYDOBROMIDE [Concomitant]
  6. EPINEPHRINE [Concomitant]
     Active Substance: EPINEPHRINE
  7. FENOFIBRATE [Concomitant]
     Active Substance: FENOFIBRATE
  8. FLAXSEED [Concomitant]
     Active Substance: FLAX SEED
  9. MELATONIN [Concomitant]
     Active Substance: MELATONIN
  10. MYRBETRIQ [Concomitant]
     Active Substance: MIRABEGRON
  11. MINERALS\VITAMINS [Concomitant]
     Active Substance: MINERALS\VITAMINS
  12. EXTRA STRENGTH HEADACHE RELIEF [Concomitant]
     Active Substance: ACETAMINOPHEN\ASPIRIN\CAFFEINE
  13. VITAMIN D3 [Concomitant]
     Active Substance: CHOLECALCIFEROL

REACTIONS (11)
  - Infusion related reaction [None]
  - Dysstasia [None]
  - Gait disturbance [None]
  - Painful respiration [None]
  - Feeling abnormal [None]
  - Chest pain [None]
  - Musculoskeletal discomfort [None]
  - Myalgia [None]
  - Headache [None]
  - Treatment noncompliance [None]
  - Product complaint [None]

NARRATIVE: CASE EVENT DATE: 20240710
